FAERS Safety Report 9601349 (Version 1)
Quarter: 2013Q4

REPORT INFORMATION
  Report Type: Report from Study
  Country: DE (occurrence: DE)
  Receive Date: 20131007
  Receipt Date: 20131007
  Transmission Date: 20140711
  Serious: Yes (Death)
  Sender: FDA-Public Use
  Company Number: DE-ROCHE-1285204

PATIENT
  Sex: 0

DRUGS (6)
  1. BEVACIZUMAB [Suspect]
     Indication: PRODUCT USED FOR UNKNOWN INDICATION
     Route: 065
     Dates: start: 201204, end: 201209
  2. FOLINIC ACID [Concomitant]
     Route: 065
     Dates: start: 201101, end: 201106
  3. FOLINIC ACID [Concomitant]
     Route: 065
     Dates: start: 201204, end: 201209
  4. 5-FLUOROURACIL [Concomitant]
     Route: 065
     Dates: start: 201101, end: 201106
  5. 5-FLUOROURACIL [Concomitant]
     Route: 065
     Dates: start: 201204, end: 201209
  6. IRINOTECAN [Concomitant]
     Route: 065
     Dates: start: 201204, end: 201209

REACTIONS (1)
  - Malignant neoplasm progression [Fatal]
